FAERS Safety Report 20296848 (Version 1)
Quarter: 2022Q1

REPORT INFORMATION
  Report Type: Spontaneous
  Country: US (occurrence: None)
  Receive Date: 20220105
  Receipt Date: 20220105
  Transmission Date: 20220423
  Serious: No
  Sender: FDA-Public Use
  Company Number: US-ROCHE-2909779

PATIENT
  Age: 15 Year
  Sex: Male

DRUGS (2)
  1. HEMLIBRA [Suspect]
     Active Substance: EMICIZUMAB-KXWH
     Indication: Factor VIII deficiency
     Dosage: STRENGTH 105 MG/0.7 ML
     Route: 058
     Dates: start: 20191021
  2. HEMLIBRA [Suspect]
     Active Substance: EMICIZUMAB-KXWH
     Dosage: STRENGTH 60MG/0.4 ML
     Route: 058
     Dates: start: 20191021

REACTIONS (3)
  - Headache [Unknown]
  - Sunburn [Unknown]
  - Weight decreased [Unknown]

NARRATIVE: CASE EVENT DATE: 20210907
